FAERS Safety Report 4966940-X (Version None)
Quarter: 2006Q2

REPORT INFORMATION
  Report Type: 
  Country: None (occurrence: None)
  Receive Date: 20060407
  Receipt Date: 20051101
  Transmission Date: 20061013
  Serious: Yes (Death, Hospitalization, Other)
  Sender: FDA-Public Use
  Company Number: US-MERCK-0511USA00276

PATIENT
  Age: 66 Year
  Sex: Female

DRUGS (1)
  1. VIOXX [Suspect]
     Indication: MONARTHRITIS
     Route: 048
     Dates: start: 20011029, end: 20020201

REACTIONS (8)
  - ATRIOVENTRICULAR BLOCK COMPLETE [None]
  - CARDIAC INFECTION [None]
  - CARDIOVASCULAR DISORDER [None]
  - CATHETER RELATED INFECTION [None]
  - CEREBROVASCULAR ACCIDENT [None]
  - ORGAN FAILURE [None]
  - SEPSIS [None]
  - THROMBOSIS [None]
